FAERS Safety Report 7967732-X (Version None)
Quarter: 2011Q4

REPORT INFORMATION
  Report Type: 
  Country: None (occurrence: None)
  Receive Date: 20111209
  Receipt Date: 20111209
  Transmission Date: 20120403
  Serious: Yes (Other)
  Sender: FDA-Public Use
  Company Number: None

PATIENT
  Age: 29 Year
  Sex: Male
  Weight: 97.522 kg

DRUGS (1)
  1. PROPECIA [Suspect]
     Indication: ANDROGENETIC ALOPECIA
     Dosage: 50 MG
     Route: 048
     Dates: start: 20040401, end: 20091101

REACTIONS (4)
  - GYNAECOMASTIA [None]
  - ERECTILE DYSFUNCTION [None]
  - LIBIDO DECREASED [None]
  - PARAESTHESIA [None]
